FAERS Safety Report 5960560-6 (Version None)
Quarter: 2008Q4

REPORT INFORMATION
  Report Type: 
  Country: None (occurrence: None)
  Receive Date: 20081120
  Receipt Date: 20081015
  Transmission Date: 20090506
  Serious: No
  Sender: FDA-Public Use
  Company Number: US-ABBOTT-08P-163-0482078-00

PATIENT
  Sex: Female

DRUGS (1)
  1. BIAXIN [Suspect]
     Indication: BRONCHITIS
     Route: 048
     Dates: start: 20081011, end: 20081014

REACTIONS (11)
  - DISTURBANCE IN ATTENTION [None]
  - FATIGUE [None]
  - HEARING IMPAIRED [None]
  - HYPERHIDROSIS [None]
  - INSOMNIA [None]
  - MOBILITY DECREASED [None]
  - SYNCOPE [None]
  - TACHYPHRENIA [None]
  - TREMOR [None]
  - VERTIGO [None]
  - VISION BLURRED [None]
